FAERS Safety Report 7472530-X (Version None)
Quarter: 2011Q2

REPORT INFORMATION
  Report Type: 
  Country: None (occurrence: None)
  Receive Date: 20110502
  Receipt Date: 20110426
  Transmission Date: 20111010
  Serious: Yes (Death)
  Sender: FDA-Public Use
  Company Number: DSA_44310_2010

PATIENT
  Sex: Female

DRUGS (7)
  1. METHADONE HCL [Concomitant]
  2. LORAZEPAM [Concomitant]
  3. XENAZINE [Suspect]
     Indication: HUNTINGTON'S DISEASE
     Dosage: 12.5, 25 MG, BID OTHER
     Dates: start: 20090320, end: 20090810
  4. XENAZINE [Suspect]
     Indication: HUNTINGTON'S DISEASE
     Dosage: 12.5, 25 MG, BID OTHER
     Dates: start: 20090811, end: 20100401
  5. BACLOFEN [Concomitant]
  6. CLONAZEPAM [Concomitant]
  7. FENTANYL [Concomitant]

REACTIONS (1)
  - DEATH [None]
